FAERS Safety Report 11988013 (Version 1)
Quarter: 2016Q1

REPORT INFORMATION
  Report Type: Spontaneous
  Country: CL (occurrence: None)
  Receive Date: 20160201
  Receipt Date: 20160201
  Transmission Date: 20160526
  Serious: Yes (Disabling)
  Sender: FDA-Public Use
  Company Number: None

PATIENT
  Age: 41 Year
  Sex: Female

DRUGS (1)
  1. NAPROXEN 550 MG PATHEON PHARMACEUTICAL S [Suspect]
     Active Substance: NAPROXEN
     Indication: PREMENSTRUAL SYNDROME
     Dosage: 1 PILL AS NEEDED TAKEN BY MOUTH
     Route: 048
     Dates: start: 20160125, end: 20160125

REACTIONS (4)
  - Feeling abnormal [None]
  - Dizziness [None]
  - Inflammation [None]
  - Abasia [None]

NARRATIVE: CASE EVENT DATE: 20160125
